FAERS Safety Report 21610669 (Version 1)
Quarter: 2022Q4

REPORT INFORMATION
  Report Type: Spontaneous
  Country: US (occurrence: None)
  Receive Date: 20221117
  Receipt Date: 20221117
  Transmission Date: 20230113
  Serious: Yes (unspecified)
  Sender: FDA-Public Use
  Company Number: None

PATIENT
  Age: 88 Year
  Sex: Female
  Weight: 48.5 kg

DRUGS (2)
  1. MONOFERRIC [Suspect]
     Active Substance: FERRIC DERISOMALTOSE
     Indication: Iron deficiency anaemia
     Dosage: OTHER FREQUENCY : ONE TIME INFUSION;?
     Route: 041
     Dates: start: 20221117, end: 20221117
  2. Acetaminophen 650 mg PO [Concomitant]
     Dates: start: 20221117, end: 20221117

REACTIONS (4)
  - Infusion related reaction [None]
  - Back pain [None]
  - Headache [None]
  - Refusal of treatment by patient [None]

NARRATIVE: CASE EVENT DATE: 20221117
